FAERS Safety Report 10841038 (Version 1)
Quarter: 2015Q1

REPORT INFORMATION
  Report Type: Spontaneous
  Country: US (occurrence: US)
  Receive Date: 20150220
  Receipt Date: 20150220
  Transmission Date: 20150721
  Serious: No
  Sender: FDA-Public Use
  Company Number: US-ABBVIE-14P-163-1239771-00

PATIENT
  Age: 67 Year
  Sex: Male
  Weight: 122.58 kg

DRUGS (1)
  1. HUMIRA [Suspect]
     Active Substance: ADALIMUMAB
     Indication: PSORIATIC ARTHROPATHY
     Dates: start: 201405

REACTIONS (4)
  - Wrong technique in drug usage process [Unknown]
  - Injection site pain [Not Recovered/Not Resolved]
  - Device issue [Recovered/Resolved]
  - Incorrect dose administered [Unknown]

NARRATIVE: CASE EVENT DATE: 201405
